FAERS Safety Report 9897103 (Version 2)
Quarter: 2014Q1

REPORT INFORMATION
  Report Type: Spontaneous
  Country: BR (occurrence: BR)
  Receive Date: 20140214
  Receipt Date: 20140214
  Transmission Date: 20141002
  Serious: Yes (Hospitalization)
  Sender: FDA-Public Use
  Company Number: BR-ROCHE-1334237

PATIENT
  Age: 82 Year
  Sex: Female

DRUGS (3)
  1. MABTHERA [Suspect]
     Indication: RHEUMATOID ARTHRITIS
     Dosage: 2 DOSES
     Route: 042
     Dates: start: 201310, end: 201310
  2. ARAVA [Suspect]
     Indication: RHEUMATOID ARTHRITIS
     Route: 048
     Dates: start: 201306, end: 201312
  3. METHOTREXATE [Suspect]
     Indication: RHEUMATOID ARTHRITIS
     Route: 048
     Dates: start: 201303, end: 201312

REACTIONS (5)
  - Bone marrow failure [Recovered/Resolved]
  - Pancytopenia [Not Recovered/Not Resolved]
  - Gastroenteritis [Unknown]
  - Gastric ulcer haemorrhage [Unknown]
  - Immunoglobulins decreased [Recovering/Resolving]
